FAERS Safety Report 24703099 (Version 3)
Quarter: 2025Q1

REPORT INFORMATION
  Report Type: Report from Study
  Country: PL (occurrence: PL)
  Receive Date: 20241205
  Receipt Date: 20250210
  Transmission Date: 20250409
  Serious: Yes (Other)
  Sender: PFIZER
  Company Number: PL-TAKEDA-2023TUS026699

PATIENT
  Age: 74 Year
  Sex: Female
  Weight: 63 kg

DRUGS (2)
  1. ADCETRIS [Suspect]
     Active Substance: BRENTUXIMAB VEDOTIN
     Indication: Cutaneous T-cell lymphoma
     Dosage: 117 MILLIGRAM, Q3WEEKS
     Route: 042
     Dates: start: 20230125
  2. ADCETRIS [Suspect]
     Active Substance: BRENTUXIMAB VEDOTIN
     Dosage: UNK UNK, Q3WEEKS
     Route: 042

REACTIONS (7)
  - Leukopenia [Recovered/Resolved]
  - Dizziness [Not Recovered/Not Resolved]
  - Neuropathy peripheral [Not Recovered/Not Resolved]
  - Neutropenia [Recovering/Resolving]
  - Balance disorder [Not Recovered/Not Resolved]
  - Haematoma [Not Recovered/Not Resolved]
  - Fall [Not Recovered/Not Resolved]

NARRATIVE: CASE EVENT DATE: 20230308
